FAERS Safety Report 13177308 (Version 1)
Quarter: 2017Q1

REPORT INFORMATION
  Report Type: Report from Study
  Country: US (occurrence: US)
  Receive Date: 20170201
  Receipt Date: 20170201
  Transmission Date: 20170428
  Serious: Yes (Hospitalization, Other)
  Sender: FDA-Public Use
  Company Number: US-EXELIXIS-CABO-15005481

PATIENT
  Age: 54 Year
  Sex: Male

DRUGS (5)
  1. COMETRIQ [Suspect]
     Active Substance: CABOZANTINIB S-MALATE
     Dosage: 40 MG, QD
     Route: 048
     Dates: start: 20151005
  2. ALLOPURINOL. [Concomitant]
     Active Substance: ALLOPURINOL
  3. COMETRIQ [Suspect]
     Active Substance: CABOZANTINIB S-MALATE
     Indication: RENAL CANCER
     Dosage: 60 MG, QD
     Route: 048
     Dates: start: 20150514, end: 20150604
  4. LEVOTHYROXINE. [Concomitant]
     Active Substance: LEVOTHYROXINE
  5. COMETRIQ [Suspect]
     Active Substance: CABOZANTINIB S-MALATE
     Dosage: 40 MG, QD
     Route: 048
     Dates: start: 201506, end: 201509

REACTIONS (14)
  - Pneumothorax [Unknown]
  - Dyspnoea [Unknown]
  - Stomatitis [Unknown]
  - Cough [Recovering/Resolving]
  - Lung infection [Recovering/Resolving]
  - Nausea [Recovering/Resolving]
  - Dysphonia [Unknown]
  - Off label use [Unknown]
  - Palmar-plantar erythrodysaesthesia syndrome [Unknown]
  - Vomiting [Unknown]
  - Fatigue [Unknown]
  - Diarrhoea [Not Recovered/Not Resolved]
  - Metastases to lung [Unknown]
  - Constipation [Not Recovered/Not Resolved]

NARRATIVE: CASE EVENT DATE: 2015
